FAERS Safety Report 12892462 (Version 1)
Quarter: 2016Q4

REPORT INFORMATION
  Report Type: Spontaneous
  Country: US (occurrence: US)
  Receive Date: 20161028
  Receipt Date: 20161028
  Transmission Date: 20170207
  Serious: No
  Sender: FDA-Public Use
  Company Number: US-PFIZER INC-2016501983

PATIENT
  Age: 63 Year
  Sex: Female

DRUGS (1)
  1. NICOTROL [Suspect]
     Active Substance: NICOTINE
     Indication: SMOKING CESSATION THERAPY
     Dosage: AS NEEDED
     Dates: start: 2005

REACTIONS (2)
  - Overdose [Unknown]
  - Malaise [Unknown]

NARRATIVE: CASE EVENT DATE: 2005
